FAERS Safety Report 5360492-0 (Version None)
Quarter: 2007Q2

REPORT INFORMATION
  Report Type: 
  Country: None (occurrence: None)
  Receive Date: 20070618
  Receipt Date: 20070611
  Transmission Date: 20071010
  Serious: Yes (Hospitalization)
  Sender: FDA-Public Use
  Company Number: B0466169A

PATIENT
  Age: 57 Year
  Sex: Male
  Weight: 48 kg

DRUGS (11)
  1. VALTREX [Suspect]
     Indication: HERPES ZOSTER
     Dosage: 1G PER DAY
     Route: 048
     Dates: start: 20070403, end: 20070405
  2. ALLOPURINOL [Concomitant]
     Dosage: 100MG PER DAY
     Route: 048
  3. CALCIUM LACTATE [Concomitant]
     Dosage: 3G PER DAY
     Route: 048
  4. CALTAN [Concomitant]
     Dosage: 9G PER DAY
     Route: 048
  5. UNKNOWN [Concomitant]
     Indication: ASTHMA
     Route: 048
  6. PURSENNID [Concomitant]
     Indication: CONSTIPATION
     Route: 048
  7. AZELASTINE HCL [Concomitant]
     Route: 048
  8. ONON [Concomitant]
     Indication: ASTHMA
     Route: 048
  9. ROCALTROL [Concomitant]
     Dosage: .25MCG PER DAY
     Route: 048
  10. SPIROPENT [Concomitant]
     Route: 048
  11. ALUMIGEL [Concomitant]
     Dosage: .9G PER DAY
     Route: 048

REACTIONS (8)
  - ABNORMAL BEHAVIOUR [None]
  - AGITATION [None]
  - ALTERED STATE OF CONSCIOUSNESS [None]
  - AZOTAEMIA [None]
  - DYSLALIA [None]
  - ENCEPHALOPATHY [None]
  - EYELID PTOSIS [None]
  - LACUNAR INFARCTION [None]
